FAERS Safety Report 8607129-2 (Version None)
Quarter: 2012Q3

REPORT INFORMATION
  Report Type: 
  Country: None (occurrence: None)
  Receive Date: 20120821
  Receipt Date: 20120814
  Transmission Date: 20120928
  Serious: No
  Sender: FDA-Public Use
  Company Number: US-BIOGENIDEC-2012BI009650

PATIENT
  Sex: Female

DRUGS (1)
  1. TYSABRI [Suspect]
     Indication: MULTIPLE SCLEROSIS
     Route: 042
     Dates: start: 20090701, end: 20120626

REACTIONS (8)
  - PAIN IN EXTREMITY [None]
  - DEAFNESS [None]
  - MUSCULAR WEAKNESS [None]
  - COUGH [None]
  - TREMOR [None]
  - EAR PAIN [None]
  - MULTIPLE SCLEROSIS [None]
  - GAIT DISTURBANCE [None]
